FAERS Safety Report 6518837-1 (Version None)
Quarter: 2009Q4

REPORT INFORMATION
  Report Type: 
  Country: None (occurrence: None)
  Receive Date: 20091228
  Receipt Date: 20091218
  Transmission Date: 20100525
  Serious: Yes (Hospitalization, Other)
  Sender: FDA-Public Use
  Company Number: US-JNJFOC-20091206705

PATIENT
  Sex: Male

DRUGS (5)
  1. HALDOL [Suspect]
     Indication: BIPOLAR DISORDER
     Route: 065
  2. DEPAKOTE [Suspect]
     Indication: DRUG USE FOR UNKNOWN INDICATION
     Route: 065
  3. RISPERIDONE CONSTA [Concomitant]
     Indication: BIPOLAR DISORDER
     Route: 030
  4. RISPERIDONE CONSTA [Concomitant]
     Route: 030
  5. RISPERIDONE CONSTA [Concomitant]
     Route: 030

REACTIONS (3)
  - ABNORMAL BEHAVIOUR [None]
  - HALLUCINATION [None]
  - MANIA [None]
